FAERS Safety Report 20256486 (Version 2)
Quarter: 2022Q1

REPORT INFORMATION
  Report Type: Report from Study
  Country: CA (occurrence: CA)
  Receive Date: 20211230
  Receipt Date: 20220224
  Transmission Date: 20220423
  Serious: Yes (Other)
  Sender: FDA-Public Use
  Company Number: CA-JNJFOC-20210953944

PATIENT
  Age: 76 Year
  Sex: Female

DRUGS (19)
  1. MACITENTAN [Suspect]
     Active Substance: MACITENTAN
     Indication: Pulmonary hypertension
     Route: 048
     Dates: start: 20210201
  2. MACITENTAN [Suspect]
     Active Substance: MACITENTAN
     Indication: Pulmonary arterial hypertension
  3. MACITENTAN [Suspect]
     Active Substance: MACITENTAN
     Indication: Connective tissue disorder
  4. MACITENTAN [Suspect]
     Active Substance: MACITENTAN
     Indication: Pulmonary arterial hypertension
  5. SELEXIPAG [Suspect]
     Active Substance: SELEXIPAG
     Indication: Pulmonary hypertension
     Route: 048
     Dates: start: 20210927
  6. SELEXIPAG [Suspect]
     Active Substance: SELEXIPAG
     Indication: Pulmonary arterial hypertension
     Route: 048
  7. SELEXIPAG [Suspect]
     Active Substance: SELEXIPAG
     Indication: Connective tissue disorder
     Route: 048
  8. SELEXIPAG [Suspect]
     Active Substance: SELEXIPAG
     Indication: Pulmonary arterial hypertension
  9. FOLIC ACID [Concomitant]
     Active Substance: FOLIC ACID
  10. LIOTHYRONINE SODIUM [Concomitant]
     Active Substance: LIOTHYRONINE SODIUM
  11. LEVOTHYROXINE [Concomitant]
     Active Substance: LEVOTHYROXINE
  12. ERGOCALCIFEROL [Concomitant]
     Active Substance: ERGOCALCIFEROL
  13. VENTOLIN [Concomitant]
     Active Substance: ALBUTEROL SULFATE
  14. FAMOTIDINE [Concomitant]
     Active Substance: FAMOTIDINE
  15. BROMAZEPAM [Concomitant]
     Active Substance: BROMAZEPAM
  16. MOMETASONE [Concomitant]
     Active Substance: MOMETASONE
  17. ASPIRIN [Concomitant]
     Active Substance: ASPIRIN
  18. ADCIRCA [Concomitant]
     Active Substance: TADALAFIL
  19. CANNABIDIOL [Concomitant]
     Active Substance: CANNABIDIOL

REACTIONS (5)
  - Rash pruritic [Not Recovered/Not Resolved]
  - Heart rate decreased [Not Recovered/Not Resolved]
  - Lichenification [Not Recovered/Not Resolved]
  - Skin exfoliation [Recovering/Resolving]
  - Rash macular [Unknown]

NARRATIVE: CASE EVENT DATE: 20210101
